FAERS Safety Report 6344264-6 (Version None)
Quarter: 2009Q3

REPORT INFORMATION
  Report Type: 
  Country: None (occurrence: None)
  Receive Date: 20090904
  Receipt Date: 20090904
  Transmission Date: 20100115
  Serious: Yes (Other)
  Sender: FDA-Public Use
  Company Number: None

PATIENT
  Age: 72 Year
  Sex: Female
  Weight: 58.7 kg

DRUGS (23)
  1. NUVIGIL [Suspect]
     Indication: FATIGUE
     Dosage: 150MG DAILY PO
     Route: 048
  2. NUVIGIL [Suspect]
     Indication: MULTIPLE SCLEROSIS
     Dosage: 150MG DAILY PO
     Route: 048
  3. ALBUTEROL [Concomitant]
  4. HFA [Concomitant]
  5. ZYRTEC [Concomitant]
  6. VIT B12 INJECTIONS [Concomitant]
  7. ESTRADIOL [Concomitant]
  8. DURAGESIC-75 [Concomitant]
  9. DYAZIDE [Concomitant]
  10. SYNTHROID [Concomitant]
  11. LOPRESSOR [Concomitant]
  12. CENTRUM SILVER [Concomitant]
  13. CALCIUM [Concomitant]
  14. FISH OIL [Concomitant]
  15. PRILOSEC OTC [Concomitant]
  16. OXYCODONE HCL [Concomitant]
  17. MIRALAX [Concomitant]
  18. POTASSIUM CHLORIDE [Concomitant]
  19. BACTRIM DS [Concomitant]
  20. TOPAMAX [Concomitant]
  21. TRAZODONE [Concomitant]
  22. AZMACORT [Concomitant]
  23. NASACORT [Concomitant]

REACTIONS (6)
  - FATIGUE [None]
  - OROPHARYNGEAL PAIN [None]
  - PETECHIAE [None]
  - PURPURA [None]
  - PYREXIA [None]
  - SINUS CONGESTION [None]
